FAERS Safety Report 9859871 (Version 2)
Quarter: 2014Q1

REPORT INFORMATION
  Report Type: Report from Study
  Country: FR (occurrence: FR)
  Receive Date: 20140131
  Receipt Date: 20140131
  Transmission Date: 20141002
  Serious: Yes (Hospitalization)
  Sender: FDA-Public Use
  Company Number: FR-BRISTOL-MYERS SQUIBB COMPANY-20020178

PATIENT
  Age: 63 Year
  Sex: Female
  Weight: 112 kg

DRUGS (15)
  1. NIVOLUMAB [Suspect]
     Indication: METASTATIC MALIGNANT MELANOMA
     Route: 042
     Dates: start: 20131205
  2. IPILIMUMAB [Suspect]
     Indication: METASTATIC MALIGNANT MELANOMA
     Route: 042
     Dates: start: 20131205
  3. BLINDED: PLACEBO [Suspect]
     Indication: METASTATIC MALIGNANT MELANOMA
     Route: 042
     Dates: start: 20131205
  4. CORTICOSTEROID [Concomitant]
  5. METFORMINE [Concomitant]
  6. PERINDOPRIL [Concomitant]
  7. SIMVASTATIN [Concomitant]
  8. DOLIPRANE [Concomitant]
     Dates: start: 20131224
  9. AUGMENTIN [Concomitant]
     Dates: start: 20131224
  10. NEOCODION SULFOGAIACOL CODEINE [Concomitant]
     Dates: start: 20131224
  11. IMODIUM [Concomitant]
     Dates: start: 20131224
  12. DIFFU-K [Concomitant]
     Dates: start: 20131224
  13. ROVAMYCINE [Concomitant]
     Dates: start: 20131224
  14. HYDROCORTISONE [Concomitant]
  15. CORTANCYL [Concomitant]
     Dates: start: 20140117

REACTIONS (1)
  - Meningoradiculitis [Recovered/Resolved with Sequelae]
